FAERS Safety Report 25355334 (Version 1)
Quarter: 2025Q2

REPORT INFORMATION
  Report Type: Spontaneous
  Country: US (occurrence: US)
  Receive Date: 20250524
  Receipt Date: 20250524
  Transmission Date: 20250717
  Serious: Yes (Death, Hospitalization, Other)
  Sender: AMGEN
  Company Number: US-AMGEN-USASP2025100769

PATIENT

DRUGS (1)
  1. PREDNISONE [Suspect]
     Active Substance: PREDNISONE
     Indication: Immunosuppressant drug therapy
     Route: 065

REACTIONS (7)
  - Death [Fatal]
  - Infection [Unknown]
  - Heart transplant rejection [Unknown]
  - Complications of transplanted heart [Unknown]
  - Cerebrovascular accident [Unknown]
  - End stage renal disease [Unknown]
  - Diabetes mellitus [Unknown]
